FAERS Safety Report 20957923 (Version 7)
Quarter: 2024Q4

REPORT INFORMATION
  Report Type: Report from Study
  Country: IN (occurrence: IN)
  Receive Date: 20220614
  Receipt Date: 20241010
  Transmission Date: 20250115
  Serious: Yes (Other)
  Sender: NOVARTIS
  Company Number: IN-NOVARTISPH-NVSC2022IN133513

PATIENT
  Age: 67 Year
  Sex: Male

DRUGS (6)
  1. VOTRIENT [Suspect]
     Active Substance: PAZOPANIB HYDROCHLORIDE
     Indication: Renal cell carcinoma
     Dosage: 400 MG, QD
     Route: 048
     Dates: start: 20160806
  2. VOTRIENT [Suspect]
     Active Substance: PAZOPANIB HYDROCHLORIDE
     Dosage: 400 MG, QD
     Route: 048
     Dates: start: 20170912
  3. VOTRIENT [Suspect]
     Active Substance: PAZOPANIB HYDROCHLORIDE
     Dosage: 400 MG, QD
     Route: 048
     Dates: start: 20211021
  4. VOTRIENT [Suspect]
     Active Substance: PAZOPANIB HYDROCHLORIDE
     Dosage: 400 MG, QD
     Route: 048
     Dates: start: 20220418, end: 20220421
  5. VOTRIENT [Suspect]
     Active Substance: PAZOPANIB HYDROCHLORIDE
     Dosage: 400 MG, QD
     Route: 048
     Dates: start: 20230422
  6. VOTRIENT [Suspect]
     Active Substance: PAZOPANIB HYDROCHLORIDE
     Dosage: 400 MG, QD
     Route: 048
     Dates: start: 20230729

REACTIONS (7)
  - Chronic kidney disease [Unknown]
  - Renal atrophy [Not Recovered/Not Resolved]
  - Renal disorder [Not Recovered/Not Resolved]
  - Lymphadenopathy mediastinal [Unknown]
  - Lymphadenopathy [Unknown]
  - Positron emission tomogram abnormal [Unknown]
  - Paratracheal lymphadenopathy [Unknown]

NARRATIVE: CASE EVENT DATE: 20220418
